FAERS Safety Report 15672439 (Version 2)
Quarter: 2024Q1

REPORT INFORMATION
  Report Type: Spontaneous
  Country: FR (occurrence: FR)
  Receive Date: 20181129
  Receipt Date: 20240322
  Transmission Date: 20240409
  Serious: Yes (Hospitalization, Other)
  Sender: FDA-Public Use
  Company Number: FR-NOVPHSZ-PHHY2018FR134482

PATIENT
  Age: 48 Year
  Sex: Female
  Weight: 72 kg

DRUGS (11)
  1. HYDROCORTISONE [Suspect]
     Active Substance: HYDROCORTISONE
     Indication: Product used for unknown indication
     Route: 065
  2. KETAMINE [Suspect]
     Active Substance: KETAMINE
     Indication: Product used for unknown indication
     Dosage: 50 MG, QMO
     Route: 041
     Dates: start: 201407, end: 201407
  3. KETAMINE [Suspect]
     Active Substance: KETAMINE
     Dosage: 50 MG, QMO
     Route: 041
     Dates: start: 201410, end: 201411
  4. KETAMINE [Suspect]
     Active Substance: KETAMINE
     Dosage: 70 MG, QMO
     Route: 041
     Dates: start: 201501, end: 201502
  5. KETAMINE [Suspect]
     Active Substance: KETAMINE
     Route: 041
     Dates: start: 201502
  6. ACETAMINOPHEN [Suspect]
     Active Substance: ACETAMINOPHEN
     Indication: Product used for unknown indication
     Route: 065
  7. LERCANIDIPINE [Suspect]
     Active Substance: LERCANIDIPINE
     Indication: Product used for unknown indication
     Dosage: 10 MG, QD
     Route: 065
  8. ESOMEPRAZOLE [Suspect]
     Active Substance: ESOMEPRAZOLE
     Indication: Product used for unknown indication
     Route: 048
  9. SKENAN [Suspect]
     Active Substance: MORPHINE SULFATE
     Indication: Product used for unknown indication
     Dosage: 40 MG, QD
     Route: 048
  10. SKENAN [Suspect]
     Active Substance: MORPHINE SULFATE
     Dosage: 40 MG, 2X/DAY
     Route: 048
  11. LYRICA [Suspect]
     Active Substance: PREGABALIN
     Indication: Product used for unknown indication
     Route: 065
     Dates: start: 201209, end: 20150101

REACTIONS (1)
  - Hepatic cytolysis [Recovered/Resolved]

NARRATIVE: CASE EVENT DATE: 20150323
